FAERS Safety Report 12883522 (Version 2)
Quarter: 2017Q1

REPORT INFORMATION
  Report Type: Spontaneous
  Country: US (occurrence: US)
  Receive Date: 20161025
  Receipt Date: 20170131
  Transmission Date: 20170428
  Serious: Yes (Hospitalization, Disabling)
  Sender: FDA-Public Use
  Company Number: US-ENDO PHARMACEUTICALS INC.-2016-006470

PATIENT
  Age: 64 Year
  Sex: Male
  Weight: 113.38 kg

DRUGS (6)
  1. METOPROLOL. [Concomitant]
     Active Substance: METOPROLOL
     Indication: HYPERTENSION
     Dosage: UNK, UNKNOWN
     Route: 065
     Dates: start: 1995
  2. ALLOPURINOL TABLETS [Concomitant]
     Active Substance: ALLOPURINOL
     Indication: GOUT
     Dosage: UNK, UNKNOWN
     Route: 065
     Dates: start: 2000
  3. LEVOTHYROXINE. [Concomitant]
     Active Substance: LEVOTHYROXINE
     Indication: HYPOTHYROIDISM
     Dosage: UNK, UNKNOWN
     Route: 065
     Dates: start: 2005
  4. TESTOPEL [Suspect]
     Active Substance: TESTOSTERONE
     Indication: ANDROGEN REPLACEMENT THERAPY
     Dosage: UNK, ONCE
     Route: 058
     Dates: start: 201310, end: 201312
  5. TESTOSTERONE CYPIONATE. [Suspect]
     Active Substance: TESTOSTERONE CYPIONATE
     Indication: ANDROGEN REPLACEMENT THERAPY
     Dosage: UNK, TWICE MONTHLY
     Route: 065
     Dates: start: 201111, end: 201305
  6. AMLODIPINE [Concomitant]
     Active Substance: AMLODIPINE BESYLATE
     Indication: HYPERTENSION
     Dosage: UNK UNK, UNKNOWN
     Route: 065
     Dates: start: 1995

REACTIONS (2)
  - Cardiovascular disorder [Not Recovered/Not Resolved]
  - Supraventricular tachycardia [Unknown]

NARRATIVE: CASE EVENT DATE: 20131028
